FAERS Safety Report 4655256-7 (Version None)
Quarter: 2005Q2

REPORT INFORMATION
  Report Type: 
  Country: None (occurrence: None)
  Receive Date: 20050506
  Receipt Date: 20050427
  Transmission Date: 20051028
  Serious: Yes (Other)
  Sender: FDA-Public Use
  Company Number: CA-JNJFOC-20050405756

PATIENT
  Sex: Male

DRUGS (4)
  1. CONCERTA [Suspect]
     Dosage: (ONE 27 MG TABLET PLUS ONE 18 MG TABLET)
     Route: 049
  2. CONCERTA [Suspect]
     Indication: ATTENTION DEFICIT/HYPERACTIVITY DISORDER
     Route: 049
  3. NASACORT [Concomitant]
     Indication: DRUG USE FOR UNKNOWN INDICATION
  4. EPIPEN [Concomitant]
     Indication: ANAPHYLACTIC REACTION
     Dosage: AS NEEDED

REACTIONS (4)
  - ANAPHYLACTIC REACTION [None]
  - DISTURBANCE IN ATTENTION [None]
  - DRUG INEFFECTIVE [None]
  - NERVOUSNESS [None]
